FAERS Safety Report 20891330 (Version 1)
Quarter: 2022Q2

REPORT INFORMATION
  Report Type: Report from Study
  Country: US (occurrence: US)
  Receive Date: 20220530
  Receipt Date: 20220530
  Transmission Date: 20220720
  Serious: Yes (Other)
  Sender: FDA-Public Use
  Company Number: US-ABBVIE-22K-163-4412036-00

PATIENT
  Age: 83 Year
  Sex: Female

DRUGS (3)
  1. RINVOQ [Suspect]
     Active Substance: UPADACITINIB
     Indication: Rheumatoid arthritis
     Route: 048
     Dates: start: 202001
  2. RINVOQ [Suspect]
     Active Substance: UPADACITINIB
     Route: 048
     Dates: end: 202205
  3. RINVOQ [Suspect]
     Active Substance: UPADACITINIB
     Route: 048
     Dates: start: 202205

REACTIONS (5)
  - Upper limb fracture [Unknown]
  - Pelvic fracture [Unknown]
  - Rheumatoid arthritis [Unknown]
  - Fall [Unknown]
  - Sciatica [Unknown]

NARRATIVE: CASE EVENT DATE: 20220301
